FAERS Safety Report 4626182-4 (Version None)
Quarter: 2005Q2

REPORT INFORMATION
  Report Type: 
  Country: None (occurrence: None)
  Receive Date: 20050404
  Receipt Date: 20050121
  Transmission Date: 20051028
  Serious: Yes (Other)
  Sender: FDA-Public Use
  Company Number: DE-BOEHRINGER INGELHEIM PHARMACEUTICALS, INC.-2005-DE-00262DE

PATIENT
  Age: 35 Year
  Sex: Female

DRUGS (4)
  1. CATAPRESAN [Suspect]
     Indication: BLOOD PRESSURE ABNORMAL
     Route: 048
     Dates: end: 20041201
  2. CATAPRESAN [Suspect]
     Route: 048
     Dates: start: 20041201
  3. CATAPRESAN [Suspect]
     Dosage: 75 MG/DAY EVERY 2-3 DAYS
     Route: 048
  4. METOPROLOL SUCCINATE [Concomitant]
     Route: 048

REACTIONS (11)
  - CHILLS [None]
  - DRUG WITHDRAWAL SYNDROME [None]
  - DYSPHAGIA [None]
  - FEAR [None]
  - HEADACHE [None]
  - HYPERTENSIVE CRISIS [None]
  - HYPOAESTHESIA [None]
  - MUSCLE SPASMS [None]
  - NAUSEA [None]
  - PANIC ATTACK [None]
  - TREMOR [None]
